FAERS Safety Report 9705661 (Version 2)
Quarter: 2013Q4

REPORT INFORMATION
  Report Type: Spontaneous
  Country: US (occurrence: US)
  Receive Date: 20131122
  Receipt Date: 20131122
  Transmission Date: 20140711
  Serious: Yes (Hospitalization)
  Sender: FDA-Public Use
  Company Number: US-GILEAD-2008-0017570

PATIENT
  Age: 62 Year
  Sex: Female
  Weight: 53.98 kg

DRUGS (17)
  1. LETAIRIS [Suspect]
     Indication: PULMONARY ARTERIAL HYPERTENSION
     Route: 048
     Dates: start: 20080711, end: 20080727
  2. LISINOPRIL [Concomitant]
     Route: 048
  3. NORVASC [Concomitant]
     Route: 048
  4. SIMVASTATIN [Concomitant]
     Route: 048
  5. FLONASE SPR 0.05% [Concomitant]
     Route: 055
  6. CLARITIN [Concomitant]
     Route: 048
  7. PRILOSEC [Concomitant]
     Route: 048
  8. TYLENOL [Concomitant]
     Route: 048
  9. CALCIUM [Concomitant]
     Route: 048
  10. CENTRUM [Concomitant]
     Route: 048
  11. ASPIRIN [Concomitant]
     Route: 048
  12. IRON [Concomitant]
  13. TRAMADOL [Concomitant]
  14. TUMS [Concomitant]
  15. VOLTAREN [Concomitant]
     Route: 061
  16. SULINDAC [Concomitant]
  17. DEXAMETHASONE [Concomitant]
     Route: 061

REACTIONS (4)
  - Headache [None]
  - Haemoglobin decreased [None]
  - Local swelling [Recovered/Resolved]
  - Dyspnoea [Recovered/Resolved]
